FAERS Safety Report 4949328-7 (Version None)
Quarter: 2006Q1

REPORT INFORMATION
  Report Type: 
  Country: None (occurrence: None)
  Receive Date: 20060315
  Receipt Date: 20060308
  Transmission Date: 20060701
  Serious: Yes (Other)
  Sender: FDA-Public Use
  Company Number: HQWYE288410MAR06

PATIENT
  Age: 89 Year
  Sex: Female
  Weight: 63.56 kg

DRUGS (3)
  1. INDERAL [Suspect]
     Indication: HYPERTENSION
     Dosage: 80 MG 2X PER 1 DAY, ORAL
     Route: 048
     Dates: start: 19990223
  2. ISOSORBIDE (ISOSORBIDE) [Concomitant]
  3. FUROSEMIDE [Concomitant]

REACTIONS (2)
  - ELECTROCARDIOGRAM ABNORMAL [None]
  - HEART RATE INCREASED [None]
